FAERS Safety Report 12225236 (Version 1)
Quarter: 2016Q1

REPORT INFORMATION
  Report Type: Spontaneous
  Country: US (occurrence: US)
  Receive Date: 20160331
  Receipt Date: 20160331
  Transmission Date: 20160526
  Serious: Yes (Other)
  Sender: FDA-Public Use
  Company Number: US-GLAXOSMITHKLINE-US2016039824

PATIENT
  Age: 83 Year
  Sex: Female

DRUGS (1)
  1. BREO ELLIPTA [Suspect]
     Active Substance: FLUTICASONE FUROATE\VILANTEROL TRIFENATATE
     Indication: CHRONIC OBSTRUCTIVE PULMONARY DISEASE
     Dosage: 100/25MG
     Route: 055
     Dates: start: 20160313

REACTIONS (10)
  - Eye disorder [Unknown]
  - Accidental exposure to product [Unknown]
  - Diarrhoea [Not Recovered/Not Resolved]
  - Circumstance or information capable of leading to device use error [Unknown]
  - Emergency care [Unknown]
  - Ocular hyperaemia [Unknown]
  - Conjunctivitis [Unknown]
  - Eye haemorrhage [Unknown]
  - Headache [Unknown]
  - Corneal disorder [Unknown]

NARRATIVE: CASE EVENT DATE: 20160313
